FAERS Safety Report 10388147 (Version 2)
Quarter: 2014Q4

REPORT INFORMATION
  Report Type: Spontaneous
  Country: US (occurrence: US)
  Receive Date: 20140815
  Receipt Date: 20141006
  Transmission Date: 20150528
  Serious: No
  Sender: FDA-Public Use
  Company Number: US-009507513-1408USA008727

PATIENT
  Sex: Female

DRUGS (2)
  1. CLARITIN [Suspect]
     Active Substance: LORATADINE
     Indication: HYPERSENSITIVITY
     Dosage: 5 MG, QD
     Route: 048
     Dates: start: 201401, end: 201408
  2. CLARITIN [Suspect]
     Active Substance: LORATADINE
     Indication: COUGH

REACTIONS (2)
  - Condition aggravated [Recovered/Resolved]
  - Epistaxis [Recovered/Resolved]

NARRATIVE: CASE EVENT DATE: 2014
